FAERS Safety Report 11311639 (Version 2)
Quarter: 2016Q1

REPORT INFORMATION
  Report Type: Spontaneous
  Country: US (occurrence: US)
  Receive Date: 20150727
  Receipt Date: 20160201
  Transmission Date: 20160525
  Serious: Yes (Hospitalization, Other)
  Sender: FDA-Public Use
  Company Number: US-BAYER-2015-379026

PATIENT
  Age: 51 Year
  Sex: Female

DRUGS (4)
  1. TIZANIDINE. [Interacting]
     Active Substance: TIZANIDINE
     Indication: BACK PAIN
     Dosage: 4 MG, 3 TIMES A DAY AS NEEDED
  2. OXYCODONE [Concomitant]
     Active Substance: OXYCODONE
     Indication: BACK PAIN
     Dosage: 5/325 MG 3 TIMES DAILY AS NEEDED
  3. METRONIDAZOLE. [Interacting]
     Active Substance: METRONIDAZOLE
     Indication: DIVERTICULITIS
     Dosage: 500 MG, TID
  4. CIPROFLOXACIN. [Suspect]
     Active Substance: CIPROFLOXACIN
     Indication: DIVERTICULITIS
     Dosage: 500 MG, BID

REACTIONS (11)
  - Drug interaction [None]
  - Thrombocytopenia [None]
  - Nausea [None]
  - Headache [None]
  - Clostridium difficile infection [None]
  - Renal impairment [None]
  - Orthostatic hypotension [None]
  - Dizziness [None]
  - Inhibitory drug interaction [None]
  - Abdominal pain [None]
  - Vomiting [None]
